FAERS Safety Report 13954423 (Version 2)
Quarter: 2017Q3

REPORT INFORMATION
  Report Type: Spontaneous
  Country: US (occurrence: US)
  Receive Date: 20170911
  Receipt Date: 20170918
  Transmission Date: 20171128
  Serious: No
  Sender: FDA-Public Use
  Company Number: US-PFIZER INC-2017390381

PATIENT
  Age: 51 Year
  Sex: Female
  Weight: 86 kg

DRUGS (4)
  1. LEVONOX [Concomitant]
     Active Substance: ENOXAPARIN
     Dosage: UNK
  2. NORVASC [Suspect]
     Active Substance: AMLODIPINE BESYLATE
     Indication: HYPERTENSION
     Dosage: 5 MG, DAILY
  3. KEPPRA [Concomitant]
     Active Substance: LEVETIRACETAM
     Dosage: UNK
  4. ENALAPRIL [Concomitant]
     Active Substance: ENALAPRIL
     Indication: HYPERTENSION
     Dosage: 20 MG, DAILY

REACTIONS (1)
  - Blood pressure inadequately controlled [Recovered/Resolved]

NARRATIVE: CASE EVENT DATE: 20170906
